FAERS Safety Report 8177236-X (Version None)
Quarter: 2012Q1

REPORT INFORMATION
  Report Type: 
  Country: None (occurrence: None)
  Receive Date: 20120301
  Receipt Date: 20120224
  Transmission Date: 20120608
  Serious: Yes (Death, Hospitalization)
  Sender: FDA-Public Use
  Company Number: US-ELI_LILLY_AND_COMPANY-US201202007427

PATIENT
  Sex: Female

DRUGS (2)
  1. GEMZAR [Suspect]
     Dosage: 2000 MG, EVERY 2 WEEKS
     Dates: end: 20110201
  2. GEMZAR [Suspect]
     Indication: PANCREATIC CARCINOMA
     Dosage: 2000 MG, EVERY WEEK X3
     Dates: start: 20101007

REACTIONS (4)
  - DEATH [None]
  - INFECTION [None]
  - BODY TEMPERATURE INCREASED [None]
  - ASTHENIA [None]
